FAERS Safety Report 10253098 (Version 1)
Quarter: 2014Q2

REPORT INFORMATION
  Report Type: Spontaneous
  Country: US (occurrence: US)
  Receive Date: 20140623
  Receipt Date: 20140623
  Transmission Date: 20141212
  Serious: No
  Sender: FDA-Public Use
  Company Number: US-TEVA-489598USA

PATIENT
  Age: 50 Year
  Sex: Female

DRUGS (2)
  1. COPAXONE 40MG [Suspect]
     Indication: RELAPSING-REMITTING MULTIPLE SCLEROSIS
     Dates: start: 20140602, end: 20140606
  2. COPAXONE [Suspect]
     Indication: RELAPSING-REMITTING MULTIPLE SCLEROSIS
     Dates: end: 20140602

REACTIONS (5)
  - Injection site reaction [Recovered/Resolved]
  - Erythema [Recovered/Resolved]
  - Rash [Recovered/Resolved]
  - Urticaria [Recovered/Resolved]
  - Eyelid oedema [Recovered/Resolved]
